FAERS Safety Report 12849103 (Version 2)
Quarter: 2016Q4

REPORT INFORMATION
  Report Type: Spontaneous
  Country: US (occurrence: US)
  Receive Date: 20161014
  Receipt Date: 20161227
  Transmission Date: 20170207
  Serious: Yes (Hospitalization)
  Sender: FDA-Public Use
  Company Number: US-ABBVIE-16K-163-1747619-00

PATIENT
  Sex: Male
  Weight: 129.39 kg

DRUGS (13)
  1. SIMVASTATIN. [Concomitant]
     Active Substance: SIMVASTATIN
     Indication: PRODUCT USED FOR UNKNOWN INDICATION
     Dosage: AT BEDTIME
  2. HUMIRA [Suspect]
     Active Substance: ADALIMUMAB
     Indication: RHEUMATOID ARTHRITIS
     Route: 058
  3. VITAMIN D3 [Concomitant]
     Active Substance: CHOLECALCIFEROL
     Indication: PRODUCT USED FOR UNKNOWN INDICATION
  4. LYRICA [Concomitant]
     Active Substance: PREGABALIN
     Indication: PRODUCT USED FOR UNKNOWN INDICATION
  5. MORPHINE [Concomitant]
     Active Substance: MORPHINE
     Indication: PRODUCT USED FOR UNKNOWN INDICATION
     Dosage: 30 MG/ 24 HOURS CAPSULE, EXTENDED RELEASE 1 CAP(S) TWICE A DAY
  6. ACETAMINOPHEN W/OXYCODONE [Concomitant]
     Active Substance: ACETAMINOPHEN\OXYCODONE HYDROCHLORIDE
     Indication: PRODUCT USED FOR UNKNOWN INDICATION
     Dosage: 325 MG-7.5 MG TABLET 1 TAB(S) THREE TIMES A DAY
  7. HUMIRA [Suspect]
     Active Substance: ADALIMUMAB
     Indication: ANKYLOSING SPONDYLITIS
  8. VITAMIN B12 [Concomitant]
     Active Substance: CYANOCOBALAMIN
     Indication: PRODUCT USED FOR UNKNOWN INDICATION
  9. FOLIC ACID. [Concomitant]
     Active Substance: FOLIC ACID
     Indication: PRODUCT USED FOR UNKNOWN INDICATION
  10. TRAZODONE [Concomitant]
     Active Substance: TRAZODONE HYDROCHLORIDE
     Indication: PRODUCT USED FOR UNKNOWN INDICATION
     Dosage: AT BEDTIME
  11. COLACE [Concomitant]
     Active Substance: DOCUSATE SODIUM
     Indication: PRODUCT USED FOR UNKNOWN INDICATION
  12. CALCIUM [Concomitant]
     Active Substance: CALCIUM
     Indication: PRODUCT USED FOR UNKNOWN INDICATION
     Dosage: 600+D 1200 MILLIGRAM
  13. PIROXICAM. [Concomitant]
     Active Substance: PIROXICAM
     Indication: NECK PAIN

REACTIONS (20)
  - Hypoaesthesia [Unknown]
  - Nasal congestion [Unknown]
  - Benign breast neoplasm [Not Recovered/Not Resolved]
  - Acute kidney injury [Recovered/Resolved]
  - Joint stiffness [Unknown]
  - Vitreous floaters [Unknown]
  - Prostatomegaly [Unknown]
  - Lymphadenopathy [Unknown]
  - Skin atrophy [Unknown]
  - Blood testosterone free decreased [Unknown]
  - Arthralgia [Unknown]
  - Joint swelling [Unknown]
  - Pain in extremity [Unknown]
  - Dehydration [Recovered/Resolved]
  - Diverticulitis [Recovered/Resolved]
  - Procedural pain [Not Recovered/Not Resolved]
  - Dry mouth [Unknown]
  - Micturition urgency [Unknown]
  - Pain [Unknown]
  - Testicular failure [Unknown]

NARRATIVE: CASE EVENT DATE: 2014
